FAERS Safety Report 5668692-7 (Version None)
Quarter: 2008Q1

REPORT INFORMATION
  Report Type: 
  Country: None (occurrence: None)
  Receive Date: 20080312
  Receipt Date: 20080304
  Transmission Date: 20080703
  Serious: Yes (Other)
  Sender: FDA-Public Use
  Company Number: 122-21880-08030135

PATIENT
  Age: 65 Year
  Sex: Male

DRUGS (3)
  1. REVLIMID [Suspect]
     Indication: MULTIPLE MYELOMA
     Dosage: 25 MG, EVERY OTHER DAY, ORAL, 25 MG, DAILY FROM DAY 10, ORAL
     Route: 048
     Dates: start: 20080124
  2. DEXAMETHASONE TAB [Concomitant]
  3. G-CSF (GRANULOCYTE COLONY STIMULATING FACTOR) [Concomitant]

REACTIONS (1)
  - AMNESIA [None]
